FAERS Safety Report 17152958 (Version 2)
Quarter: 2019Q4

REPORT INFORMATION
  Report Type: Spontaneous
  Country: US (occurrence: US)
  Receive Date: 20191213
  Receipt Date: 20191231
  Transmission Date: 20200122
  Serious: No
  Sender: FDA-Public Use
  Company Number: US-BAUSCH-BL-2019-064076

PATIENT
  Sex: Female

DRUGS (2)
  1. PRESERVATIVE BAC [Suspect]
     Active Substance: BENZALKONIUM CHLORIDE
     Indication: PRODUCT USED FOR UNKNOWN INDICATION
     Dosage: APPROXIMATELY 8 MONTHS{ 2019. FREQUENCY: 2-4 TIMES A DAY.
     Route: 065
     Dates: start: 2019
  2. LUMIFY [Suspect]
     Active Substance: BRIMONIDINE TARTRATE
     Indication: PRODUCT USED FOR UNKNOWN INDICATION
     Dosage: APPROXIMATELY 8 MONTHS{ 2019. FREQUENCY: 2-4 TIMES A DAY.
     Route: 065
     Dates: start: 2019, end: 2019

REACTIONS (9)
  - Eye swelling [Unknown]
  - Therapeutic product effect decreased [Unknown]
  - Superficial injury of eye [Unknown]
  - Drug hypersensitivity [Unknown]
  - Dental operation [Unknown]
  - Eye allergy [Not Recovered/Not Resolved]
  - Immunodeficiency [Unknown]
  - Immune system disorder [Unknown]
  - Vision blurred [Recovered/Resolved]

NARRATIVE: CASE EVENT DATE: 2019
